FAERS Safety Report 5641861-8 (Version None)
Quarter: 2008Q1

REPORT INFORMATION
  Report Type: 
  Country: None (occurrence: None)
  Receive Date: 20080227
  Receipt Date: 20080131
  Transmission Date: 20080703
  Serious: No
  Sender: FDA-Public Use
  Company Number: US-BOEHRINGER INGELHEIM GMBH, GERMANY-2008-BP-01569BP

PATIENT
  Sex: Female

DRUGS (2)
  1. SPIRIVA [Suspect]
     Indication: DYSPNOEA
     Route: 055
  2. ADVAIR DISKUS 100/50 [Concomitant]

REACTIONS (2)
  - FEELING JITTERY [None]
  - INCREASED APPETITE [None]
